FAERS Safety Report 18246217 (Version 1)
Quarter: 2020Q3

REPORT INFORMATION
  Report Type: Spontaneous
  Country: ES (occurrence: ES)
  Receive Date: 20200909
  Receipt Date: 20200909
  Transmission Date: 20201103
  Serious: Yes (Life-Threatening, Other)
  Sender: FDA-Public Use
  Company Number: ES-BRACCO-2020ES03611

PATIENT
  Age: 59 Year
  Sex: Female

DRUGS (1)
  1. PROHANCE [Suspect]
     Active Substance: GADOTERIDOL
     Indication: COMPUTERISED TOMOGRAM HEAD
     Dosage: 13 ML, SINGLE
     Route: 042
     Dates: start: 20200827, end: 20200827

REACTIONS (4)
  - Cardio-respiratory arrest [Recovering/Resolving]
  - Vomiting [Recovering/Resolving]
  - Off label use [Recovering/Resolving]
  - Seizure [Recovering/Resolving]

NARRATIVE: CASE EVENT DATE: 20200827
